FAERS Safety Report 17862699 (Version 1)
Quarter: 2020Q2

REPORT INFORMATION
  Report Type: Spontaneous
  Country: US (occurrence: US)
  Receive Date: 20200604
  Receipt Date: 20200604
  Transmission Date: 20200714
  Serious: Yes (Other)
  Sender: FDA-Public Use
  Company Number: US-FOUNDATIONCONSUMERHC-2020-US-005362

PATIENT
  Age: 27 Year
  Sex: Female
  Weight: 59.87 kg

DRUGS (5)
  1. MIRTAZEPINE [Concomitant]
     Active Substance: MIRTAZAPINE
  2. PLAN B ONE-STEP [Suspect]
     Active Substance: LEVONORGESTREL
     Indication: POST COITAL CONTRACEPTION
     Dosage: 1.5 MG TABLET X 2
     Route: 048
     Dates: start: 20200304, end: 20200309
  3. SEROQUEL [Concomitant]
     Active Substance: QUETIAPINE FUMARATE
  4. HYDROXYZINE [Concomitant]
     Active Substance: HYDROXYZINE HYDROCHLORIDE
  5. ALBUTEROL INHALER [Concomitant]
     Active Substance: ALBUTEROL
     Dosage: AS NEEDED

REACTIONS (7)
  - Abdominal pain upper [Not Recovered/Not Resolved]
  - Drug ineffective [Unknown]
  - Nausea [Not Recovered/Not Resolved]
  - Pregnancy after post coital contraception [Unknown]
  - Exposure during pregnancy [Recovered/Resolved]
  - Dizziness [Not Recovered/Not Resolved]
  - Intentional product misuse [Recovered/Resolved]

NARRATIVE: CASE EVENT DATE: 20200304
